FAERS Safety Report 10568173 (Version 1)
Quarter: 2014Q4

REPORT INFORMATION
  Report Type: Spontaneous
  Country: US (occurrence: None)
  Receive Date: 20141105
  Receipt Date: 20141105
  Transmission Date: 20150529
  Serious: No
  Sender: FDA-Public Use
  Company Number: None

PATIENT
  Age: 59 Year
  Sex: Female
  Weight: 69.4 kg

DRUGS (1)
  1. TANZEUM [Suspect]
     Active Substance: ALBIGLUTIDE
     Indication: TYPE 2 DIABETES MELLITUS
     Dosage: TANZEUM ONCE A WEEK INJECTED INTO SPINAL AREA
     Dates: start: 20141012

REACTIONS (1)
  - Insomnia [None]

NARRATIVE: CASE EVENT DATE: 20140922
